FAERS Safety Report 6788313-X (Version None)
Quarter: 2010Q2

REPORT INFORMATION
  Report Type: 
  Country: None (occurrence: None)
  Receive Date: 20100623
  Receipt Date: 20080326
  Transmission Date: 20101027
  Serious: No
  Sender: FDA-Public Use
  Company Number: US-PFIZER INC-2008012267

PATIENT
  Age: 33 Year
  Sex: Male
  Weight: 125.45 kg

DRUGS (3)
  1. CADUET [Suspect]
     Indication: HYPERTENSION
     Dosage: 10/20
     Route: 048
     Dates: start: 20071002
  2. CADUET [Suspect]
     Indication: HYPERCHOLESTEROLAEMIA
  3. LISINOPRIL [Concomitant]

REACTIONS (1)
  - PAIN IN EXTREMITY [None]
